FAERS Safety Report 12442707 (Version 2)
Quarter: 2016Q3

REPORT INFORMATION
  Report Type: Spontaneous
  Country: US (occurrence: US)
  Receive Date: 20160607
  Receipt Date: 20160726
  Transmission Date: 20161109
  Serious: Yes (Other)
  Sender: FDA-Public Use
  Company Number: US-PFIZER INC-2016281144

PATIENT
  Age: 2 Day
  Sex: Male
  Weight: 1.9 kg

DRUGS (6)
  1. PHENYTOIN SODIUM. [Suspect]
     Active Substance: PHENYTOIN SODIUM
     Dosage: 5 MG/KG, DAILY (5 MG EVERY 12 HOURS (5 MG/KG-DAY))
     Route: 042
  2. PHENOBARBITONE [Suspect]
     Active Substance: PHENOBARBITAL
     Dosage: UNK
     Route: 048
  3. PHENOBARBITONE [Suspect]
     Active Substance: PHENOBARBITAL
     Indication: SEIZURE
     Dosage: 10 MG/KG, UNK (SECOND AND THIRD DAYS OF LIFE)
     Route: 042
  4. PHENYTOIN SODIUM. [Suspect]
     Active Substance: PHENYTOIN SODIUM
     Indication: SEIZURE
     Dosage: 10 MG/KG, UNK (SECOND AND THIRD DAYS OF LIFE)
     Route: 042
  5. DILANTIN [Suspect]
     Active Substance: PHENYTOIN
     Indication: SEIZURE
     Dosage: UNK
     Route: 048
  6. PHENOBARBITONE [Suspect]
     Active Substance: PHENOBARBITAL
     Dosage: 10 MG/KG, DAILY (10 MG EVERY 12 HOURS (10 MG/KG, DAY))
     Route: 042

REACTIONS (2)
  - Toxicity to various agents [Recovered/Resolved]
  - Bradycardia neonatal [Recovered/Resolved]
